FAERS Safety Report 10406352 (Version 1)
Quarter: 2014Q3

REPORT INFORMATION
  Report Type: Spontaneous
  Country: US (occurrence: US)
  Receive Date: 20140825
  Receipt Date: 20140825
  Transmission Date: 20150326
  Serious: Yes (Other)
  Sender: FDA-Public Use
  Company Number: US-ASTRAZENECA-2014SE61184

PATIENT
  Age: 77 Year
  Sex: Female
  Weight: 86.2 kg

DRUGS (3)
  1. PANTOPRAZOLE [Concomitant]
     Active Substance: PANTOPRAZOLE SODIUM
     Route: 048
     Dates: start: 20140715
  2. NEXIUM [Suspect]
     Active Substance: ESOMEPRAZOLE MAGNESIUM
     Indication: GASTROOESOPHAGEAL REFLUX DISEASE
     Route: 048
     Dates: start: 20140810
  3. TUMS [Concomitant]
     Active Substance: CALCIUM CARBONATE
     Dosage: PRN

REACTIONS (7)
  - Procedural haemorrhage [Unknown]
  - Dyspepsia [Unknown]
  - Flatulence [Unknown]
  - Faeces discoloured [Unknown]
  - Abdominal pain [Unknown]
  - Gastrointestinal motility disorder [Unknown]
  - Nausea [Unknown]
